FAERS Safety Report 8110362-X (Version None)
Quarter: 2012Q1

REPORT INFORMATION
  Report Type: 
  Country: None (occurrence: None)
  Receive Date: 20120202
  Receipt Date: 20120127
  Transmission Date: 20120608
  Serious: Yes (Other)
  Sender: FDA-Public Use
  Company Number: US-ASTRAZENECA-2012SE05830

PATIENT
  Age: 59 Year
  Sex: Female
  Weight: 108.9 kg

DRUGS (2)
  1. PRILOSEC [Concomitant]
  2. CRESTOR [Suspect]
     Indication: BLOOD CHOLESTEROL ABNORMAL
     Route: 048

REACTIONS (4)
  - ABDOMINAL PAIN [None]
  - PAIN IN EXTREMITY [None]
  - PAIN [None]
  - CHEST PAIN [None]
